FAERS Safety Report 24800634 (Version 2)
Quarter: 2025Q1

REPORT INFORMATION
  Report Type: Spontaneous
  Country: US (occurrence: US)
  Receive Date: 20250102
  Receipt Date: 20250113
  Transmission Date: 20250409
  Serious: No
  Sender: BIOGEN
  Company Number: US-BIOGEN-2005BI007157

PATIENT
  Sex: Female

DRUGS (22)
  1. AVONEX [Suspect]
     Active Substance: INTERFERON BETA-1A
     Indication: Multiple sclerosis
     Route: 050
  2. AVONEX [Suspect]
     Active Substance: INTERFERON BETA-1A
  3. AVONEX [Suspect]
     Active Substance: INTERFERON BETA-1A
  4. AVONEX [Suspect]
     Active Substance: INTERFERON BETA-1A
  5. CLONAZEPAM [Concomitant]
     Active Substance: CLONAZEPAM
     Route: 050
  6. DULOXETINE [Concomitant]
     Active Substance: DULOXETINE
     Route: 050
  7. FAMOTIDINE [Concomitant]
     Active Substance: FAMOTIDINE
     Route: 050
  8. GABAPENTIN [Concomitant]
     Active Substance: GABAPENTIN
     Route: 050
  9. HYDROCODONE [Concomitant]
     Active Substance: HYDROCODONE
     Route: 050
  10. IBUPROFEN [Concomitant]
     Active Substance: IBUPROFEN
     Route: 050
  11. LEVOTHYROXINE [Concomitant]
     Active Substance: LEVOTHYROXINE
     Route: 050
  12. LINZESS [Concomitant]
     Active Substance: LINACLOTIDE
     Route: 050
  13. LUTEIN [Concomitant]
     Active Substance: LUTEIN
     Route: 050
  14. MECLIZINE HYDROCHLORIDE [Concomitant]
     Active Substance: MECLIZINE HYDROCHLORIDE
     Route: 050
  15. MIRALAX [Concomitant]
     Active Substance: POLYETHYLENE GLYCOL 3350
     Route: 050
  16. OMEPRAZOLE [Concomitant]
     Active Substance: OMEPRAZOLE
     Route: 050
  17. PREGABALIN [Concomitant]
     Active Substance: PREGABALIN
     Route: 050
  18. PREGABALIN [Concomitant]
     Active Substance: PREGABALIN
     Route: 050
  19. PROCHLORPERAZINE [Concomitant]
     Active Substance: PROCHLORPERAZINE
     Route: 050
  20. TIZANIDINE [Concomitant]
     Active Substance: TIZANIDINE
     Route: 050
  21. TUMS [Concomitant]
     Active Substance: CALCIUM CARBONATE
     Route: 050
  22. VITAMIN D [Concomitant]
     Active Substance: VITAMIN D NOS
     Route: 050

REACTIONS (22)
  - Product dose omission issue [Unknown]
  - Insomnia [Not Recovered/Not Resolved]
  - Hypersomnia [Unknown]
  - Temperature intolerance [Unknown]
  - Optic neuritis [Unknown]
  - Blepharospasm [Unknown]
  - Facial paralysis [Unknown]
  - Bladder disorder [Unknown]
  - Gastrointestinal disorder [Unknown]
  - Balance disorder [Unknown]
  - Gastrointestinal hypomotility [Unknown]
  - Animal bite [Unknown]
  - Tendon injury [Unknown]
  - Musculoskeletal disorder [Unknown]
  - Paraesthesia [Not Recovered/Not Resolved]
  - Pain [Not Recovered/Not Resolved]
  - Pyrexia [Not Recovered/Not Resolved]
  - Pain in extremity [Not Recovered/Not Resolved]
  - Urinary tract infection [Unknown]
  - Muscle spasms [Unknown]
  - Nausea [Recovered/Resolved]
  - Vomiting [Recovered/Resolved]
